FAERS Safety Report 8977460 (Version 1)
Quarter: 2012Q4

REPORT INFORMATION
  Report Type: 
  Country: US (occurrence: US)
  Receive Date: 20121219
  Receipt Date: 20121219
  Transmission Date: 20130627
  Serious: Yes (Disabling)
  Sender: FDA-Public Use
  Company Number: US-PFIZER INC-2012320911

PATIENT
  Age: 55 Year
  Sex: Female
  Weight: 120.18 kg

DRUGS (5)
  1. LYRICA [Suspect]
     Indication: GENERAL BODY PAIN
     Dosage: 150 mg, 2x/day
     Route: 048
     Dates: start: 2010
  2. OPANA ER [Concomitant]
     Indication: PAIN
     Dosage: UNK
  3. OXYCODONE [Concomitant]
     Indication: PAIN
     Dosage: UNK
  4. LASIX [Concomitant]
     Indication: BLOOD PRESSURE HIGH
     Dosage: UNK
  5. ATENOLOL [Concomitant]
     Indication: BLOOD PRESSURE HIGH
     Dosage: UNK

REACTIONS (1)
  - Meniscus injury [Unknown]
